FAERS Safety Report 25664358 (Version 1)
Quarter: 2025Q3

REPORT INFORMATION
  Report Type: Spontaneous
  Country: EU (occurrence: EU)
  Receive Date: 20250811
  Receipt Date: 20250811
  Transmission Date: 20251020
  Serious: Yes (Hospitalization)
  Sender: MYLAN
  Company Number: None

PATIENT
  Age: 18 Year
  Sex: Male
  Weight: 72.5 kg

DRUGS (16)
  1. ARIPIPRAZOLE [Suspect]
     Active Substance: ARIPIPRAZOLE
     Indication: Product used for unknown indication
     Dates: start: 20250621, end: 20250621
  2. ARIPIPRAZOLE [Suspect]
     Active Substance: ARIPIPRAZOLE
     Route: 048
     Dates: start: 20250621, end: 20250621
  3. ARIPIPRAZOLE [Suspect]
     Active Substance: ARIPIPRAZOLE
     Route: 048
     Dates: start: 20250621, end: 20250621
  4. ARIPIPRAZOLE [Suspect]
     Active Substance: ARIPIPRAZOLE
     Dates: start: 20250621, end: 20250621
  5. CYAMEMAZINE [Suspect]
     Active Substance: CYAMEMAZINE
     Indication: Product used for unknown indication
     Dates: start: 20250621, end: 20250621
  6. CYAMEMAZINE [Suspect]
     Active Substance: CYAMEMAZINE
     Route: 048
     Dates: start: 20250621, end: 20250621
  7. CYAMEMAZINE [Suspect]
     Active Substance: CYAMEMAZINE
     Route: 048
     Dates: start: 20250621, end: 20250621
  8. CYAMEMAZINE [Suspect]
     Active Substance: CYAMEMAZINE
     Dates: start: 20250621, end: 20250621
  9. TRAMADOL [Suspect]
     Active Substance: TRAMADOL
     Indication: Product used for unknown indication
     Dates: start: 20250621, end: 20250621
  10. TRAMADOL [Suspect]
     Active Substance: TRAMADOL
     Route: 048
     Dates: start: 20250621, end: 20250621
  11. TRAMADOL [Suspect]
     Active Substance: TRAMADOL
     Route: 048
     Dates: start: 20250621, end: 20250621
  12. TRAMADOL [Suspect]
     Active Substance: TRAMADOL
     Dates: start: 20250621, end: 20250621
  13. ETIFOXINE HYDROCHLORIDE [Suspect]
     Active Substance: ETIFOXINE HYDROCHLORIDE
     Indication: Product used for unknown indication
     Dates: start: 20250621, end: 20250621
  14. ETIFOXINE HYDROCHLORIDE [Suspect]
     Active Substance: ETIFOXINE HYDROCHLORIDE
     Route: 048
     Dates: start: 20250621, end: 20250621
  15. ETIFOXINE HYDROCHLORIDE [Suspect]
     Active Substance: ETIFOXINE HYDROCHLORIDE
     Route: 048
     Dates: start: 20250621, end: 20250621
  16. ETIFOXINE HYDROCHLORIDE [Suspect]
     Active Substance: ETIFOXINE HYDROCHLORIDE
     Dates: start: 20250621, end: 20250621

REACTIONS (3)
  - Poisoning deliberate [Recovered/Resolved]
  - Coma [Recovered/Resolved]
  - Overdose [Unknown]

NARRATIVE: CASE EVENT DATE: 20250621
